FAERS Safety Report 8532494-4 (Version None)
Quarter: 2012Q3

REPORT INFORMATION
  Report Type: 
  Country: None (occurrence: None)
  Receive Date: 20120716
  Receipt Date: 20120716
  Transmission Date: 20120928
  Serious: Yes (Other)
  Sender: FDA-Public Use
  Company Number: None

PATIENT
  Age: 21 Year
  Sex: Male
  Weight: 68.0396 kg

DRUGS (1)
  1. PROPECIA [Suspect]
     Indication: ANDROGENETIC ALOPECIA
     Dosage: 5 MG 1 X DAILY PO
     Route: 048
     Dates: start: 20080701, end: 20090801

REACTIONS (5)
  - LIBIDO DECREASED [None]
  - SEXUAL DYSFUNCTION [None]
  - SEMEN ANALYSIS ABNORMAL [None]
  - PREMATURE EJACULATION [None]
  - ERECTILE DYSFUNCTION [None]
